FAERS Safety Report 13014538 (Version 4)
Quarter: 2018Q1

REPORT INFORMATION
  Report Type: Report from Study
  Country: BR (occurrence: BR)
  Receive Date: 20161209
  Receipt Date: 20180321
  Transmission Date: 20180508
  Serious: Yes (Other)
  Sender: FDA-Public Use
  Company Number: PHHY2015BR064616

PATIENT
  Sex: Female
  Weight: 54 kg

DRUGS (8)
  1. EFAVIRENZ. [Concomitant]
     Active Substance: EFAVIRENZ
     Indication: PRODUCT USED FOR UNKNOWN INDICATION
     Dosage: UNK
     Route: 065
  2. TENOFOVIR DISOPROXIL FUMARATE. [Concomitant]
     Active Substance: TENOFOVIR DISOPROXIL FUMARATE
     Indication: PRODUCT USED FOR UNKNOWN INDICATION
     Dosage: UNK
     Route: 065
  3. FOLIC ACID. [Concomitant]
     Active Substance: FOLIC ACID
     Indication: HAEMOGLOBINOPATHY
     Dosage: 2 DF, QD
     Route: 048
  4. EXJADE [Suspect]
     Active Substance: DEFERASIROX
     Indication: HAEMOGLOBINOPATHY
     Dosage: 5 DF, QD (5 DISPERSIBLE TABLETS OF 500MG)
     Route: 048
  5. LAMIVUDINE. [Concomitant]
     Active Substance: LAMIVUDINE
     Indication: PRODUCT USED FOR UNKNOWN INDICATION
     Dosage: UNK
     Route: 065
  6. EXJADE [Suspect]
     Active Substance: DEFERASIROX
     Dosage: UNK
     Route: 048
  7. EXJADE [Suspect]
     Active Substance: DEFERASIROX
     Dosage: 4 DF, QD (4 TABLETS OF 500 MG)
     Route: 048
  8. MAREVAN [Concomitant]
     Active Substance: WARFARIN SODIUM
     Indication: PRODUCT USED FOR UNKNOWN INDICATION
     Dosage: UNK
     Route: 065

REACTIONS (19)
  - Chills [Unknown]
  - Blood iron increased [Unknown]
  - Alopecia [Unknown]
  - Serum ferritin decreased [Unknown]
  - Wrong technique in product usage process [Unknown]
  - Weight increased [Unknown]
  - Serum ferritin increased [Unknown]
  - Serum ferritin abnormal [Unknown]
  - Haemoglobin abnormal [Unknown]
  - Diarrhoea [Recovered/Resolved]
  - Vomiting [Recovering/Resolving]
  - Inappropriate schedule of drug administration [Unknown]
  - Retching [Unknown]
  - Poisoning [Recovering/Resolving]
  - Dizziness [Not Recovered/Not Resolved]
  - Drug intolerance [Unknown]
  - Nausea [Unknown]
  - Malaise [Unknown]
  - Dysphagia [Unknown]
